FAERS Safety Report 6313683-6 (Version None)
Quarter: 2009Q3

REPORT INFORMATION
  Report Type: 
  Country: None (occurrence: None)
  Receive Date: 20090814
  Receipt Date: 20090801
  Transmission Date: 20100115
  Serious: Yes (Death)
  Sender: FDA-Public Use
  Company Number: AUR-APL-2009-00325

PATIENT
  Sex: Female

DRUGS (2)
  1. METFORMIN HCL [Suspect]
     Dosage: 1000MG, BID, ORAL
     Route: 048
  2. AMISULPRIDE [Suspect]
     Dosage: 600MG, DAILY, ORAL
     Route: 048

REACTIONS (3)
  - DRUG TOXICITY [None]
  - OVERDOSE [None]
  - RENAL IMPAIRMENT [None]
